FAERS Safety Report 13650959 (Version 2)
Quarter: 2017Q3

REPORT INFORMATION
  Report Type: Spontaneous
  Country: JP (occurrence: JP)
  Receive Date: 20170614
  Receipt Date: 20170713
  Transmission Date: 20171127
  Serious: No
  Sender: FDA-Public Use
  Company Number: JP-CELGENEUS-JPN-20170603183

PATIENT
  Age: 8 Decade
  Sex: Male

DRUGS (2)
  1. REVLIMID [Suspect]
     Active Substance: LENALIDOMIDE
     Indication: PLASMA CELL MYELOMA
     Dosage: 5 MILLIGRAM
     Route: 048
     Dates: start: 201701, end: 201705
  2. LENADEX [Suspect]
     Active Substance: DEXAMETHASONE ACETATE
     Indication: PLASMA CELL MYELOMA
     Route: 048
     Dates: start: 201701, end: 201705

REACTIONS (1)
  - Enteritis [Recovering/Resolving]

NARRATIVE: CASE EVENT DATE: 201705
